FAERS Safety Report 20767921 (Version 1)
Quarter: 2022Q2

REPORT INFORMATION
  Report Type: Spontaneous
  Country: CN (occurrence: None)
  Receive Date: 20220429
  Receipt Date: 20220429
  Transmission Date: 20220720
  Serious: Yes (Other)
  Sender: FDA-Public Use
  Company Number: CN-ROCHE-3084884

PATIENT
  Age: 59 Year
  Sex: Male
  Weight: 70 kg

DRUGS (49)
  1. MABTHERA [Suspect]
     Active Substance: RITUXIMAB
     Indication: High-grade B-cell lymphoma
     Route: 065
     Dates: start: 20211116
  2. MABTHERA [Suspect]
     Active Substance: RITUXIMAB
     Route: 065
     Dates: start: 20211117
  3. MABTHERA [Suspect]
     Active Substance: RITUXIMAB
     Route: 065
     Dates: start: 20211129
  4. MABTHERA [Suspect]
     Active Substance: RITUXIMAB
     Route: 065
     Dates: start: 20211130
  5. MABTHERA [Suspect]
     Active Substance: RITUXIMAB
     Route: 065
     Dates: start: 20211231
  6. MABTHERA [Suspect]
     Active Substance: RITUXIMAB
     Route: 065
     Dates: start: 20220121
  7. MABTHERA [Suspect]
     Active Substance: RITUXIMAB
     Route: 065
     Dates: start: 20220217
  8. MABTHERA [Suspect]
     Active Substance: RITUXIMAB
     Route: 065
     Dates: start: 20220311
  9. MABTHERA [Suspect]
     Active Substance: RITUXIMAB
     Route: 065
     Dates: start: 20220331
  10. POLATUZUMAB VEDOTIN [Suspect]
     Active Substance: POLATUZUMAB VEDOTIN
     Indication: High-grade B-cell lymphoma
     Route: 065
     Dates: start: 20211231
  11. POLATUZUMAB VEDOTIN [Suspect]
     Active Substance: POLATUZUMAB VEDOTIN
     Route: 065
     Dates: start: 20220121
  12. POLATUZUMAB VEDOTIN [Suspect]
     Active Substance: POLATUZUMAB VEDOTIN
     Route: 065
     Dates: start: 20220217
  13. POLATUZUMAB VEDOTIN [Suspect]
     Active Substance: POLATUZUMAB VEDOTIN
     Route: 065
     Dates: start: 20220311
  14. POLATUZUMAB VEDOTIN [Suspect]
     Active Substance: POLATUZUMAB VEDOTIN
     Route: 065
     Dates: start: 20220331
  15. DEXAMETHASONE [Concomitant]
     Active Substance: DEXAMETHASONE
     Indication: High-grade B-cell lymphoma
     Dates: start: 20211116
  16. DEXAMETHASONE [Concomitant]
     Active Substance: DEXAMETHASONE
     Dates: start: 20211117
  17. DEXAMETHASONE [Concomitant]
     Active Substance: DEXAMETHASONE
     Dates: start: 20211118
  18. DEXAMETHASONE [Concomitant]
     Active Substance: DEXAMETHASONE
     Dates: start: 20211119
  19. DEXAMETHASONE [Concomitant]
     Active Substance: DEXAMETHASONE
     Dates: start: 20211120
  20. DEXAMETHASONE [Concomitant]
     Active Substance: DEXAMETHASONE
     Dates: start: 20211129
  21. DEXAMETHASONE [Concomitant]
     Active Substance: DEXAMETHASONE
     Dates: start: 20211130
  22. DEXAMETHASONE [Concomitant]
     Active Substance: DEXAMETHASONE
     Dates: start: 20211201
  23. DEXAMETHASONE [Concomitant]
     Active Substance: DEXAMETHASONE
     Dates: start: 20211202
  24. DEXAMETHASONE [Concomitant]
     Active Substance: DEXAMETHASONE
     Dates: start: 20211203
  25. CYCLOPHOSPHAMIDE [Concomitant]
     Active Substance: CYCLOPHOSPHAMIDE
     Indication: High-grade B-cell lymphoma
     Dates: start: 20211118
  26. CYCLOPHOSPHAMIDE [Concomitant]
     Active Substance: CYCLOPHOSPHAMIDE
     Dates: start: 20211119
  27. CYCLOPHOSPHAMIDE [Concomitant]
     Active Substance: CYCLOPHOSPHAMIDE
     Dates: start: 20211201
  28. DOXORUBICIN HYDROCHLORIDE [Concomitant]
     Active Substance: DOXORUBICIN HYDROCHLORIDE
     Indication: High-grade B-cell lymphoma
     Dates: start: 20211118
  29. DOXORUBICIN HYDROCHLORIDE [Concomitant]
     Active Substance: DOXORUBICIN HYDROCHLORIDE
     Dates: start: 20211119
  30. DOXORUBICIN HYDROCHLORIDE [Concomitant]
     Active Substance: DOXORUBICIN HYDROCHLORIDE
     Dates: start: 20211201
  31. DOXORUBICIN HYDROCHLORIDE [Concomitant]
     Active Substance: DOXORUBICIN HYDROCHLORIDE
     Dates: start: 20211202
  32. ETOPOSIDE [Concomitant]
     Active Substance: ETOPOSIDE
     Indication: High-grade B-cell lymphoma
     Dates: start: 20211118
  33. ETOPOSIDE [Concomitant]
     Active Substance: ETOPOSIDE
     Dates: start: 20211119
  34. ETOPOSIDE [Concomitant]
     Active Substance: ETOPOSIDE
     Dates: start: 20211201
  35. ETOPOSIDE [Concomitant]
     Active Substance: ETOPOSIDE
     Dates: start: 20211202
  36. ETOPOSIDE [Concomitant]
     Active Substance: ETOPOSIDE
     Dates: start: 20211203
  37. BENDAMUSTINE [Concomitant]
     Active Substance: BENDAMUSTINE
     Indication: High-grade B-cell lymphoma
     Dosage: DAY2-3
     Dates: start: 20211231
  38. BENDAMUSTINE [Concomitant]
     Active Substance: BENDAMUSTINE
     Dosage: DAY1-2
     Dates: start: 20220121
  39. CYTARABINE [Concomitant]
     Active Substance: CYTARABINE
     Indication: High-grade B-cell lymphoma
     Dosage: DAY1-2
     Dates: start: 20220121
  40. CYTARABINE [Concomitant]
     Active Substance: CYTARABINE
     Dosage: DAY1-2
     Dates: start: 20220217
  41. CYTARABINE [Concomitant]
     Active Substance: CYTARABINE
     Dosage: DAY1-2
     Dates: start: 20220311
  42. CYTARABINE [Concomitant]
     Active Substance: CYTARABINE
     Dosage: DAY1-2
     Dates: start: 20220331
  43. OXALIPLATIN [Concomitant]
     Active Substance: OXALIPLATIN
     Indication: High-grade B-cell lymphoma
     Dosage: DAY2
     Dates: start: 20220311
  44. POSACONAZOLE [Concomitant]
     Active Substance: POSACONAZOLE
     Indication: Pneumonia
     Route: 048
     Dates: start: 20220311
  45. VORICONAZOLE [Concomitant]
     Active Substance: VORICONAZOLE
     Indication: Septic shock
     Dates: start: 2021
  46. VORICONAZOLE [Concomitant]
     Active Substance: VORICONAZOLE
     Indication: Pneumonia
     Route: 042
     Dates: start: 20220214
  47. CEFTAZIDIME [Concomitant]
     Active Substance: CEFTAZIDIME
     Indication: Septic shock
  48. TIGECYCLINE [Concomitant]
     Active Substance: TIGECYCLINE
     Indication: Septic shock
  49. LINEZOLID [Concomitant]
     Active Substance: LINEZOLID
     Indication: Septic shock

REACTIONS (2)
  - Myelosuppression [Unknown]
  - Off label use [Unknown]

NARRATIVE: CASE EVENT DATE: 20220101
